FAERS Safety Report 7571579-6 (Version None)
Quarter: 2011Q2

REPORT INFORMATION
  Report Type: 
  Country: None (occurrence: None)
  Receive Date: 20110624
  Receipt Date: 20110621
  Transmission Date: 20111010
  Serious: Yes (Other)
  Sender: FDA-Public Use
  Company Number: US-BRISTOL-MYERS SQUIBB COMPANY-15848443

PATIENT
  Age: 71 Year
  Sex: Female

DRUGS (2)
  1. GLUCOPHAGE [Suspect]
  2. ACTOS [Suspect]

REACTIONS (2)
  - CARDIAC FAILURE [None]
  - HEART RATE IRREGULAR [None]
